FAERS Safety Report 5713240-6 (Version None)
Quarter: 2008Q2

REPORT INFORMATION
  Report Type: 
  Country: None (occurrence: None)
  Receive Date: 20080422
  Receipt Date: 19990826
  Transmission Date: 20081010
  Serious: Yes (Death, Other)
  Sender: FDA-Public Use
  Company Number: BG-ROCHE-214354

PATIENT
  Sex: Female
  Weight: 79.5 kg

DRUGS (2)
  1. CAPECITABINE [Suspect]
     Dosage: INTERMITTENT THERAPY, 2 WEEKS TREATMENT, 1 WEEK REST
     Route: 048
     Dates: start: 19990610, end: 19990714
  2. PARACETAMOL [Concomitant]
     Dates: start: 19990525, end: 19990804

REACTIONS (4)
  - BACK PAIN [None]
  - DEATH [None]
  - DYSPNOEA [None]
  - SUDDEN DEATH [None]
